FAERS Safety Report 7106520-3 (Version None)
Quarter: 2010Q4

REPORT INFORMATION
  Report Type: 
  Country: None (occurrence: None)
  Receive Date: 20101116
  Receipt Date: 20101103
  Transmission Date: 20110411
  Serious: Yes (Other)
  Sender: FDA-Public Use
  Company Number: GB-ABBOTT-10P-167-0683728-00

PATIENT
  Sex: Female

DRUGS (2)
  1. HUMIRA [Suspect]
     Indication: CROHN'S DISEASE
     Dates: start: 20100701
  2. HUMIRA [Suspect]

REACTIONS (4)
  - CHROMATURIA [None]
  - INFLUENZA LIKE ILLNESS [None]
  - MYALGIA [None]
  - RASH GENERALISED [None]
